FAERS Safety Report 12875794 (Version 1)
Quarter: 2016Q4

REPORT INFORMATION
  Report Type: Spontaneous
  Country: US (occurrence: US)
  Receive Date: 20161024
  Receipt Date: 20161024
  Transmission Date: 20170207
  Serious: No
  Sender: FDA-Public Use
  Company Number: US-JAZZ-2016-US-015092

PATIENT
  Sex: Female

DRUGS (32)
  1. XYREM [Suspect]
     Active Substance: SODIUM OXYBATE
     Indication: NARCOLEPSY
     Dosage: 1.25 G, BID
     Route: 048
     Dates: start: 201606, end: 201606
  2. BENADRYL ALLERGY [Concomitant]
     Active Substance: DIPHENHYDRAMINE HYDROCHLORIDE
  3. VESICARE [Concomitant]
     Active Substance: SOLIFENACIN SUCCINATE
  4. VITAMIN D [Concomitant]
     Active Substance: CHOLECALCIFEROL
  5. NORCO [Concomitant]
     Active Substance: ACETAMINOPHEN\HYDROCODONE BITARTRATE
  6. OMEPRAZOLE. [Concomitant]
     Active Substance: OMEPRAZOLE
  7. LISINOPRIL. [Concomitant]
     Active Substance: LISINOPRIL
  8. PROTONIX [Concomitant]
     Active Substance: PANTOPRAZOLE SODIUM
  9. ALEVE [Concomitant]
     Active Substance: NAPROXEN SODIUM
  10. DIAMOX SEQUELS [Concomitant]
     Active Substance: ACETAZOLAMIDE
  11. POTASSIUM GLUCONATE [Concomitant]
     Active Substance: POTASSIUM GLUCONATE
  12. ONDANSETRON HCL [Concomitant]
     Active Substance: ONDANSETRON HYDROCHLORIDE
     Dosage: UNK
  13. DIAZEPAM. [Concomitant]
     Active Substance: DIAZEPAM
  14. DOXYCYCLINE HYCLATE. [Concomitant]
     Active Substance: DOXYCYCLINE HYCLATE
  15. METFORMIN HCL [Concomitant]
     Active Substance: METFORMIN HYDROCHLORIDE
  16. PREVACID [Concomitant]
     Active Substance: LANSOPRAZOLE
  17. GINSENG [Concomitant]
     Active Substance: ASIAN GINSENG
  18. LEVOXYL [Concomitant]
     Active Substance: LEVOTHYROXINE SODIUM
  19. PREDNISONE. [Concomitant]
     Active Substance: PREDNISONE
  20. ZINC GLUCONATE [Concomitant]
     Active Substance: ZINC GLUCONATE
  21. ASPIRIN. [Concomitant]
     Active Substance: ASPIRIN
  22. VALTREX [Concomitant]
     Active Substance: VALACYCLOVIR HYDROCHLORIDE
  23. ZYPREXA [Concomitant]
     Active Substance: OLANZAPINE
  24. ADDERALL [Concomitant]
     Active Substance: AMPHETAMINE ASPARTATE\AMPHETAMINE SULFATE\DEXTROAMPHETAMINE SACCHARATE\DEXTROAMPHETAMINE SULFATE
  25. AVAPRO [Concomitant]
     Active Substance: IRBESARTAN
  26. PROZAC [Concomitant]
     Active Substance: FLUOXETINE HYDROCHLORIDE
  27. SINGULAIR [Concomitant]
     Active Substance: MONTELUKAST SODIUM
  28. XYREM [Suspect]
     Active Substance: SODIUM OXYBATE
     Indication: CATAPLEXY
     Dosage: 2.25 G, BID
     Route: 048
     Dates: start: 201606, end: 2016
  29. XYREM [Suspect]
     Active Substance: SODIUM OXYBATE
     Dosage: 3 G, BID
     Route: 048
     Dates: start: 2016
  30. FOLIC ACID. [Concomitant]
     Active Substance: FOLIC ACID
  31. ZYRTEC [Concomitant]
     Active Substance: CETIRIZINE HYDROCHLORIDE
  32. SYNTHROID [Concomitant]
     Active Substance: LEVOTHYROXINE SODIUM

REACTIONS (1)
  - Incorrect dose administered [Unknown]

NARRATIVE: CASE EVENT DATE: 2016
